FAERS Safety Report 9402640 (Version 1)
Quarter: 2013Q3

REPORT INFORMATION
  Report Type: Spontaneous
  Country: GR (occurrence: GR)
  Receive Date: 20130716
  Receipt Date: 20130716
  Transmission Date: 20140515
  Serious: Yes (Hospitalization)
  Sender: FDA-Public Use
  Company Number: GR-ASTELLAS-2013EU005793

PATIENT
  Age: 10 Year
  Sex: Female

DRUGS (3)
  1. TACROLIMUS SYSTEMIC [Suspect]
     Indication: IMMUNOSUPPRESSION
     Dosage: UNK
     Route: 065
  2. AZATHIOPRINE [Concomitant]
     Indication: IMMUNOSUPPRESSION
     Dosage: UNK
     Route: 065
  3. METHYLPREDNISOLONE [Concomitant]
     Indication: IMMUNOSUPPRESSION
     Dosage: UNK
     Route: 065

REACTIONS (2)
  - Food allergy [Unknown]
  - Eczema [Unknown]
